FAERS Safety Report 15460884 (Version 1)
Quarter: 2018Q4

REPORT INFORMATION
  Report Type: Spontaneous
  Country: None (occurrence: US)
  Receive Date: 20181003
  Receipt Date: 20181003
  Transmission Date: 20190204
  Serious: Yes (Hospitalization)
  Sender: FDA-Public Use
  Company Number: US-BOIRON INC.-2018BOR00021

PATIENT
  Sex: Male

DRUGS (1)
  1. ACIDIL (HOMEOPATHIC) [Suspect]
     Active Substance: HOMEOPATHICS
     Dosage: UNK

REACTIONS (2)
  - Dyspnoea [Unknown]
  - Hypersensitivity [Unknown]
